FAERS Safety Report 6480625-2 (Version None)
Quarter: 2009Q4

REPORT INFORMATION
  Report Type: 
  Country: None (occurrence: None)
  Receive Date: 20091203
  Receipt Date: 20091120
  Transmission Date: 20100525
  Serious: Yes (Other)
  Sender: FDA-Public Use
  Company Number: 234328K06USA

PATIENT
  Age: 46 Year
  Sex: Female

DRUGS (4)
  1. REBIF [Suspect]
     Indication: MULTIPLE SCLEROSIS
     Dosage: 44 MCG, 3 IN 1 WEEKS, SUBCUTANEOUS
     Route: 058
     Dates: start: 20040105, end: 20090928
  2. REBIF [Suspect]
     Indication: MULTIPLE SCLEROSIS
     Dosage: 44 MCG, 3 IN 1 WEEKS, SUBCUTANEOUS
     Route: 058
     Dates: start: 20091117
  3. PROVIGIL [Concomitant]
  4. ALTACE [Concomitant]

REACTIONS (5)
  - DIABETES MELLITUS [None]
  - ECONOMIC PROBLEM [None]
  - FALL [None]
  - TREATMENT NONCOMPLIANCE [None]
  - WRIST FRACTURE [None]
